FAERS Safety Report 21439423 (Version 1)
Quarter: 2022Q4

REPORT INFORMATION
  Report Type: Spontaneous
  Country: US (occurrence: None)
  Receive Date: 20221010
  Receipt Date: 20221010
  Transmission Date: 20230113
  Serious: Yes (Other)
  Sender: FDA-Public Use
  Company Number: None

PATIENT
  Age: 61 Year
  Sex: Female

DRUGS (1)
  1. REPATHA [Suspect]
     Active Substance: EVOLOCUMAB
     Indication: Hyperlipidaemia
     Dosage: 140MG/ML EVERY 2 WEEKS SUB-Q?
     Route: 058
     Dates: start: 20220928

REACTIONS (8)
  - Blister [None]
  - Pruritus [None]
  - Pain [None]
  - Pain in extremity [None]
  - Arthralgia [None]
  - Blood glucose increased [None]
  - Hypersensitivity [None]
  - Erythema [None]

NARRATIVE: CASE EVENT DATE: 20221007
